FAERS Safety Report 5743649-6 (Version None)
Quarter: 2008Q2

REPORT INFORMATION
  Report Type: 
  Country: None (occurrence: None)
  Receive Date: 20080519
  Receipt Date: 20080519
  Transmission Date: 20081010
  Serious: Yes (Hospitalization)
  Sender: FDA-Public Use
  Company Number: None

PATIENT
  Sex: Female
  Weight: 59.4 kg

DRUGS (4)
  1. BEVACIZUMAB (RHUMAB VEGF) [Suspect]
     Dosage: 940 MG
     Dates: end: 20080506
  2. LEUCOVORIN CALCIUM [Suspect]
     Dosage: 1920 MG
     Dates: end: 20080506
  3. ELOXATIN [Suspect]
     Dosage: 240 MG
     Dates: end: 20080506
  4. FLUOROURACIL [Suspect]
     Dosage: 9010 MG
     Dates: end: 20080506

REACTIONS (3)
  - BACK INJURY [None]
  - CEREBROVASCULAR ACCIDENT [None]
  - FALL [None]
